FAERS Safety Report 15258389 (Version 2)
Quarter: 2018Q3

REPORT INFORMATION
  Report Type: Report from Study
  Country: US (occurrence: US)
  Receive Date: 20180809
  Receipt Date: 20180810
  Transmission Date: 20181010
  Serious: No
  Sender: FDA-Public Use
  Company Number: US-ROCHE-2165683

PATIENT
  Age: 77 Year
  Sex: Female

DRUGS (1)
  1. OCREVUS [Suspect]
     Active Substance: OCRELIZUMAB
     Indication: PRODUCT USED FOR UNKNOWN INDICATION
     Route: 065
     Dates: start: 20180625

REACTIONS (3)
  - Urinary tract infection [Recovering/Resolving]
  - Insomnia [Unknown]
  - Incontinence [Recovering/Resolving]

NARRATIVE: CASE EVENT DATE: 20180625
